FAERS Safety Report 8945735 (Version 2)
Quarter: 2013Q1

REPORT INFORMATION
  Report Type: Spontaneous
  Country: US (occurrence: US)
  Receive Date: 20121204
  Receipt Date: 20130102
  Transmission Date: 20140127
  Serious: No
  Sender: FDA-Public Use
  Company Number: US-AMGEN-USASP2012073504

PATIENT
  Age: 69 Year
  Sex: Female
  Weight: 92.9 kg

DRUGS (6)
  1. ENBREL [Suspect]
     Indication: RHEUMATOID ARTHRITIS
     Dosage: 50 MG, WEEKLY
     Route: 058
     Dates: start: 20120731
  2. METHOTREXATE [Concomitant]
     Indication: RHEUMATOID ARTHRITIS
     Dosage: 2.5 MG, 8 TABLET WEEKLY
     Route: 048
     Dates: start: 20090707
  3. LEVOTHYROXINE [Concomitant]
     Indication: HYPOTHYROIDISM
     Dosage: 150 MG, QD
     Route: 048
  4. SERTRALINE [Concomitant]
     Dosage: 150 MG, QD
     Route: 048
  5. OMEPRAZOL                          /00661201/ [Concomitant]
     Dosage: 20 MG, BID
     Route: 048
  6. LISINOPRIL [Concomitant]
     Dosage: 10 MG, QD
     Route: 048

REACTIONS (2)
  - Alopecia areata [Recovering/Resolving]
  - Cough [Not Recovered/Not Resolved]
